FAERS Safety Report 8183268-8 (Version None)
Quarter: 2012Q1

REPORT INFORMATION
  Report Type: 
  Country: None (occurrence: None)
  Receive Date: 20120201
  Receipt Date: 20110117
  Transmission Date: 20120608
  Serious: Yes (Hospitalization, Other)
  Sender: FDA-Public Use
  Company Number: 259290USA

PATIENT
  Age: 55 Year
  Sex: Male

DRUGS (10)
  1. ACETYLSALICYLIC ACID SRT [Concomitant]
  2. CALCIUM [Concomitant]
  3. SIMVASTATIN [Concomitant]
  4. CYANOCOBALAMIN [Concomitant]
  5. CYCLOBENZAPRINE HCL [Concomitant]
  6. METFORMIN HCL [Concomitant]
  7. LEVOTHYROXINE SODIUM [Concomitant]
  8. MULTIVITAMIN [Concomitant]
  9. PROPOXYPHENE NAPSYLATE AND ACETAMINOPHEN [Suspect]
     Indication: PAIN
     Dosage: ONE EVERY 6 HOURS PRN
     Dates: start: 20090101
  10. METOPROLOL TARTRATE [Concomitant]

REACTIONS (6)
  - PAIN IN EXTREMITY [None]
  - CARDIAC ARREST [None]
  - HYPOPNOEA [None]
  - LETHARGY [None]
  - SUPRAVENTRICULAR TACHYCARDIA [None]
  - APHASIA [None]
